FAERS Safety Report 9290912 (Version 1)
Quarter: 2013Q2

REPORT INFORMATION
  Report Type: Spontaneous
  Country: US (occurrence: US)
  Receive Date: 20130515
  Receipt Date: 20130515
  Transmission Date: 20140414
  Serious: Yes (Disabling, Other)
  Sender: FDA-Public Use
  Company Number: US-ASTRAZENECA-2013SE32286

PATIENT
  Age: 62 Year
  Sex: Male
  Weight: 99.8 kg

DRUGS (11)
  1. NEXIUM [Suspect]
     Indication: GASTROOESOPHAGEAL REFLUX DISEASE
     Route: 048
     Dates: start: 2011
  2. BRILINTA [Suspect]
     Indication: ACUTE CORONARY SYNDROME
     Route: 048
     Dates: start: 20120330, end: 20130506
  3. BRILINTA [Suspect]
     Indication: STENT PLACEMENT
     Route: 048
     Dates: start: 20120330, end: 20130506
  4. TOPROL XL [Suspect]
     Indication: HYPERTENSION
     Route: 048
     Dates: start: 2003
  5. CRESTOR [Suspect]
     Indication: BLOOD CHOLESTEROL ABNORMAL
     Route: 048
     Dates: start: 2004
  6. CYMBALTA [Concomitant]
     Indication: DEPRESSION
  7. ZETIA [Concomitant]
     Indication: BLOOD CHOLESTEROL ABNORMAL
     Route: 048
     Dates: start: 201203
  8. AMLODIPINE [Concomitant]
     Indication: HYPERTENSION
  9. ASPERIN [Concomitant]
  10. COQ10 [Concomitant]
  11. MEGA RED (FISH OIL) [Concomitant]

REACTIONS (1)
  - Diarrhoea haemorrhagic [Recovering/Resolving]
